FAERS Safety Report 9831811 (Version 2)
Quarter: 2014Q1

REPORT INFORMATION
  Report Type: Spontaneous
  Country: US (occurrence: US)
  Receive Date: 20140121
  Receipt Date: 20140312
  Transmission Date: 20141002
  Serious: No
  Sender: FDA-Public Use
  Company Number: US-PFIZER INC-2014014289

PATIENT
  Age: 65 Year
  Sex: Female
  Weight: 52.15 kg

DRUGS (4)
  1. GENOTROPIN [Suspect]
     Indication: HYPOTHALAMO-PITUITARY DISORDER
     Dosage: 0.4 MG, 1X/DAY
     Dates: start: 2010, end: 201401
  2. HYDROCORTISONE [Concomitant]
     Dosage: 17.5 MG, 1X/DAY
  3. LAMOTRIGINE [Concomitant]
     Indication: CONVULSION
     Dosage: UNK
  4. FLUDROCORTISONE [Concomitant]
     Dosage: UNK

REACTIONS (1)
  - Injection site haemorrhage [Unknown]
